FAERS Safety Report 9881829 (Version 1)
Quarter: 2014Q1

REPORT INFORMATION
  Report Type: Spontaneous
  Country: FR (occurrence: FR)
  Receive Date: 20140207
  Receipt Date: 20140207
  Transmission Date: 20141002
  Serious: Yes (Other)
  Sender: FDA-Public Use
  Company Number: FR-PFIZER INC-2014034413

PATIENT
  Sex: Male

DRUGS (2)
  1. ARGANOVA [Suspect]
     Indication: HEPARIN-INDUCED THROMBOCYTOPENIA
     Dosage: UNK
     Route: 065
     Dates: start: 201401
  2. CICLOSPORINE [Concomitant]
     Dosage: UNK

REACTIONS (3)
  - Thrombocytopenia [Recovered/Resolved]
  - Prothrombin time ratio decreased [Unknown]
  - Coagulation factor V level decreased [Unknown]
